FAERS Safety Report 4457490-8 (Version None)
Quarter: 2004Q3

REPORT INFORMATION
  Report Type: 
  Country: None (occurrence: None)
  Receive Date: 20040921
  Receipt Date: 20040914
  Transmission Date: 20050211
  Serious: Yes (Hospitalization)
  Sender: FDA-Public Use
  Company Number: A0515899A

PATIENT
  Age: 66 Year
  Sex: Female

DRUGS (7)
  1. ADVAIR DISKUS 100/50 [Suspect]
     Indication: ASTHMA
     Dosage: 1 PUFF (S)/ TWICE PER DAY/ INHALED
     Route: 055
     Dates: start: 20020801
  2. METFORMIN HCL [Concomitant]
  3. FLUVASTATIN SODIUM [Concomitant]
  4. PIOGLITAZONE HCL [Concomitant]
  5. LISINOPRIL [Concomitant]
  6. ROFECOXIB [Concomitant]
  7. SALBUTAMOL SULFATE [Concomitant]

REACTIONS (6)
  - DRUG INEFFECTIVE [None]
  - DYSPNOEA [None]
  - FATIGUE [None]
  - LOSS OF CONSCIOUSNESS [None]
  - MALAISE [None]
  - VIRAL INFECTION [None]
